FAERS Safety Report 7597979-6 (Version None)
Quarter: 2011Q3

REPORT INFORMATION
  Report Type: 
  Country: None (occurrence: None)
  Receive Date: 20110708
  Receipt Date: 20110629
  Transmission Date: 20111222
  Serious: Yes (Other)
  Sender: FDA-Public Use
  Company Number: PHHY2011HR58184

PATIENT
  Age: 34 Year
  Sex: Male
  Weight: 84 kg

DRUGS (6)
  1. DEXAMETHASONE [Interacting]
     Dosage: 1 DF/DAY
     Route: 042
     Dates: start: 20110512, end: 20110517
  2. KETOPROFEN [Suspect]
     Indication: BACK PAIN
     Dosage: 50 MG, BID
     Route: 048
     Dates: start: 20110512, end: 20110516
  3. KETOPROFEN [Interacting]
     Dosage: 100 MG/DAY
     Route: 042
     Dates: start: 20110512, end: 20110517
  4. VOLTAREN [Interacting]
     Indication: BACK PAIN
     Dosage: 50 MG, TID
     Route: 048
     Dates: start: 20110517, end: 20110520
  5. DIAZEPAM [Concomitant]
     Dosage: 1 DF, QD
     Route: 042
     Dates: start: 20110516
  6. NORMABEL (DIAZEPAM) [Concomitant]
     Dosage: 5 MG, QD
     Dates: start: 20110512, end: 20110520

REACTIONS (4)
  - GASTROINTESTINAL INFLAMMATION [None]
  - DRUG INTERACTION [None]
  - ALLERGIC COLITIS [None]
  - DIARRHOEA [None]
